FAERS Safety Report 8447322-5 (Version None)
Quarter: 2012Q2

REPORT INFORMATION
  Report Type: 
  Country: None (occurrence: None)
  Receive Date: 20120619
  Receipt Date: 20120612
  Transmission Date: 20120825
  Serious: Yes (Hospitalization, Other)
  Sender: FDA-Public Use
  Company Number: PHHY2012FR051589

PATIENT
  Sex: Male

DRUGS (26)
  1. ISOPTIN [Concomitant]
     Dosage: 240 MG, PER DAY
  2. CRESTOR [Concomitant]
     Dosage: 10 MG, PER DAY
  3. RAMIPRIL [Concomitant]
     Dosage: 10 MG, PER DAY
  4. FERROUS SULFATE TAB [Concomitant]
     Dosage: 80 MG, PER DAY
  5. FLAGYL [Concomitant]
  6. PREDNISOLONE [Concomitant]
     Indication: COLITIS ULCERATIVE
     Dosage: 15 MG, PER DAY
  7. ASPIRIN [Concomitant]
     Dosage: 160 MG, PER DAY
  8. VITAMIN D [Concomitant]
     Dosage: 2 DF, PER DAY
  9. OMEPRAZOLE [Concomitant]
  10. PRAXILENE [Concomitant]
     Dosage: 600 MG, PER DAY
  11. BISOPROLOL FUMARATE [Concomitant]
     Dosage: 2.5 MG, PER DAY
  12. INSPRA [Concomitant]
     Dosage: 25 MG, PER DAY
  13. AMOXICILLIN TRIHYDRATE [Suspect]
     Indication: PRODUCTIVE COUGH
     Dosage: 1 G, BID
     Route: 048
     Dates: start: 20111128, end: 20111207
  14. ZOMETA [Suspect]
     Dosage: 4 MG ONCE,SINGLE
     Dates: start: 20111128
  15. CALCIUM [Concomitant]
     Dosage: 2 DF, PER DAY
  16. LEVOFLOXACIN [Concomitant]
  17. NORMAL HUMAN IMMUNOGLOBULIN [Concomitant]
     Dosage: 30 G, UNK
     Dates: start: 20111129
  18. TAZOBACTAM [Suspect]
     Dosage: 4 G, TID
     Route: 042
     Dates: start: 20111113, end: 20111126
  19. LASIX [Concomitant]
     Dosage: 80 MG, PER DAY
  20. PANTOPRAZOLE [Concomitant]
     Dosage: 80 MG, PER DAY
     Dates: start: 20111114, end: 20111220
  21. AUGMENTIN '125' [Concomitant]
  22. DIURETICS [Concomitant]
     Dosage: UNK
  23. VANCOMYCIN [Suspect]
     Dosage: 250 MG, TID
     Route: 042
     Dates: start: 20111113, end: 20111126
  24. PURINETHOL [Concomitant]
     Indication: COLITIS ULCERATIVE
     Dosage: 100 MG, PER DAY
  25. ROWASA [Concomitant]
     Dosage: 1500 MG, PER DAY
     Dates: start: 20111027, end: 20111219
  26. ROCEPHIN [Concomitant]

REACTIONS (17)
  - INFLAMMATION [None]
  - DIARRHOEA [None]
  - PROTEINURIA [None]
  - POLYARTHRITIS [None]
  - LYMPHOPENIA [None]
  - DRUG RASH WITH EOSINOPHILIA AND SYSTEMIC SYMPTOMS [None]
  - RASH PAPULAR [None]
  - CHOLESTASIS [None]
  - RENAL FAILURE [None]
  - HEPATIC FUNCTION ABNORMAL [None]
  - HYPOALBUMINAEMIA [None]
  - BENCE JONES PROTEINURIA [None]
  - LIPASE INCREASED [None]
  - AMYLASE INCREASED [None]
  - BLOOD CREATININE INCREASED [None]
  - TUBULOINTERSTITIAL NEPHRITIS [None]
  - PYREXIA [None]
